FAERS Safety Report 15366007 (Version 1)
Quarter: 2018Q3

REPORT INFORMATION
  Report Type: Spontaneous
  Country: US (occurrence: US)
  Receive Date: 20180831
  Receipt Date: 20180831
  Transmission Date: 20181010
  Serious: Yes (Hospitalization)
  Sender: FDA-Public Use
  Company Number: None

PATIENT
  Age: 19 Year
  Sex: Female

DRUGS (1)
  1. ORKAMBI [Suspect]
     Active Substance: IVACAFTOR\LUMACAFTOR
     Dates: start: 20150924, end: 20180822

REACTIONS (4)
  - Weight decreased [None]
  - Infection [None]
  - Drug effect decreased [None]
  - Drug interaction [None]

NARRATIVE: CASE EVENT DATE: 20180712
